FAERS Safety Report 23069711 (Version 1)
Quarter: 2023Q4

REPORT INFORMATION
  Report Type: Spontaneous
  Country: CN (occurrence: CN)
  Receive Date: 20231016
  Receipt Date: 20231016
  Transmission Date: 20240110
  Serious: Yes (Other)
  Sender: FDA-Public Use
  Company Number: CN-FreseniusKabi-FK202316070

PATIENT
  Age: 39 Year
  Sex: Male
  Weight: 70 kg

DRUGS (6)
  1. PROPOFOL [Suspect]
     Active Substance: PROPOFOL
     Indication: Anaesthesia
     Route: 042
     Dates: start: 20230906, end: 20230906
  2. SEVOFLURANE [Suspect]
     Active Substance: SEVOFLURANE
     Indication: Anaesthesia
     Route: 042
     Dates: start: 20230906, end: 20230906
  3. MIDAZOLAM HYDROCHLORIDE [Suspect]
     Active Substance: MIDAZOLAM HYDROCHLORIDE
     Indication: Anaesthesia
     Route: 042
     Dates: start: 20230906, end: 20230906
  4. SUFENTANIL CITRATE [Suspect]
     Active Substance: SUFENTANIL CITRATE
     Indication: Anaesthesia
     Route: 042
     Dates: start: 20230906, end: 20230906
  5. REMIFENTANIL HYDROCHLORIDE [Suspect]
     Active Substance: REMIFENTANIL HYDROCHLORIDE
     Indication: Anaesthesia
     Route: 042
     Dates: start: 20230906, end: 20230906
  6. VECURONIUM BROMIDE FOR INJECTION [Suspect]
     Active Substance: VECURONIUM BROMIDE
     Indication: Anaesthesia
     Route: 042
     Dates: start: 20230906, end: 20230906

REACTIONS (2)
  - Bradycardia [Recovering/Resolving]
  - Blood pressure increased [Recovering/Resolving]

NARRATIVE: CASE EVENT DATE: 20230906
